FAERS Safety Report 19689779 (Version 3)
Quarter: 2021Q3

REPORT INFORMATION
  Report Type: Spontaneous
  Country: GB (occurrence: GB)
  Receive Date: 20210812
  Receipt Date: 20210907
  Transmission Date: 20211014
  Serious: Yes (Death, Disabling, Other)
  Sender: FDA-Public Use
  Company Number: GB-ACCORD-235140

PATIENT
  Age: 75 Year
  Sex: Male
  Weight: 72 kg

DRUGS (10)
  1. COLECALCIFEROL [Concomitant]
     Active Substance: CHOLECALCIFEROL
     Dosage: 800 IU INTERNATIONAL UNIT
  2. SALBUTAMOL [Concomitant]
     Active Substance: ALBUTEROL
  3. PREDNISOLONE. [Concomitant]
     Active Substance: PREDNISOLONE
     Indication: GIANT CELL ARTERITIS
     Dosage: INITIALLY 80MG ONCE A DAY THEN REDUCING TO 30MG AROUND TIME OF DEATH, GASTRO RESISTANT
     Dates: start: 20201220
  4. TAMSULOSIN/TAMSULOSIN HYDROCHLORIDE [Concomitant]
     Active Substance: TAMSULOSIN HYDROCHLORIDE
     Dates: start: 20190708
  5. ESOMEPRAZOLE/ESOMEPRAZOLE MAGNESIUM/ESOMEPRAZOLE SODIUM [Concomitant]
     Active Substance: ESOMEPRAZOLE
  6. MRNA VACCINE BIONTECH [Concomitant]
     Indication: COVID-19 IMMUNISATION
     Dosage: DOSE 1
     Dates: start: 20210116, end: 20210116
  7. ACETYLSALICYLIC ACID [Concomitant]
     Active Substance: ASPIRIN
     Dates: start: 20210101
  8. ZOLEDRONIC ACID [Suspect]
     Active Substance: ZOLEDRONIC ACID
     Indication: OSTEOPOROSIS PROPHYLAXIS
     Dosage: PLEASE ASK HOSPITAL IF YOU NEED MORE DETAILS. 5MG/100ML
     Route: 051
     Dates: start: 20210407, end: 20210407
  9. PFIZER?BIONTECH COVID?19 VACCINE [Suspect]
     Active Substance: TOZINAMERAN
     Indication: COVID-19 IMMUNISATION
     Dosage: DOSE 2. 30 MICROGRAM/0.3 ML
     Route: 030
     Dates: start: 20210331, end: 20210331
  10. OMEPRAZOLE. [Concomitant]
     Active Substance: OMEPRAZOLE
     Dates: start: 20180719

REACTIONS (13)
  - Cardiac arrest [Not Recovered/Not Resolved]
  - Deep vein thrombosis [Not Recovered/Not Resolved]
  - Otorrhoea [Not Recovered/Not Resolved]
  - Limb discomfort [Recovering/Resolving]
  - Dysstasia [Not Recovered/Not Resolved]
  - Gait disturbance [Unknown]
  - Fatigue [Recovering/Resolving]
  - Dyspnoea [Recovering/Resolving]
  - Pulmonary embolism [Fatal]
  - Pain in extremity [Unknown]
  - Chest discomfort [Recovered/Resolved]
  - Hypopnoea [Not Recovered/Not Resolved]
  - Dizziness [Not Recovered/Not Resolved]

NARRATIVE: CASE EVENT DATE: 20210408
